FAERS Safety Report 24939101 (Version 1)
Quarter: 2025Q1

REPORT INFORMATION
  Report Type: Spontaneous
  Country: US (occurrence: US)
  Receive Date: 20250206
  Receipt Date: 20250206
  Transmission Date: 20250408
  Serious: No
  Sender: CALLIDITAS THERAPEUTICS AB
  Company Number: US-Calliditas-2025CAL00118

PATIENT
  Age: 51 Year
  Sex: Male

DRUGS (9)
  1. TARPEYO [Suspect]
     Active Substance: BUDESONIDE
     Indication: Haematuria
     Route: 048
     Dates: start: 20230307
  2. FOSAMAX [Concomitant]
     Active Substance: ALENDRONATE SODIUM
  3. UROXATRAL [Concomitant]
     Active Substance: ALFUZOSIN HYDROCHLORIDE
     Route: 048
  4. CALCITRIOL [Concomitant]
     Active Substance: CALCITRIOL
  5. JARDIANCE [Concomitant]
     Active Substance: EMPAGLIFLOZIN
  6. VITAMIN D2 [Concomitant]
     Active Substance: ERGOCALCIFEROL
  7. TREMFYA [Concomitant]
     Active Substance: GUSELKUMAB
  8. PRAVACHOL [Concomitant]
     Active Substance: PRAVASTATIN SODIUM
  9. DIOVAN [Concomitant]
     Active Substance: VALSARTAN

REACTIONS (2)
  - Urine protein/creatinine ratio increased [Unknown]
  - Acne [Not Recovered/Not Resolved]
